FAERS Safety Report 5196251-1 (Version None)
Quarter: 2006Q4

REPORT INFORMATION
  Report Type: 
  Country: None (occurrence: None)
  Receive Date: 20061222
  Receipt Date: 20061215
  Transmission Date: 20070319
  Serious: Yes (Hospitalization)
  Sender: FDA-Public Use
  Company Number: 2006SP007383

PATIENT
  Age: 75 Year
  Sex: Male

DRUGS (1)
  1. TEMODAL [Suspect]
     Indication: GLIOBLASTOMA MULTIFORME
     Dosage: 300 MG QD PO
     Route: 048
     Dates: start: 20061122, end: 20061123

REACTIONS (1)
  - INTRACRANIAL TUMOUR HAEMORRHAGE [None]
